FAERS Safety Report 7313129-5 (Version None)
Quarter: 2011Q1

REPORT INFORMATION
  Report Type: 
  Country: None (occurrence: None)
  Receive Date: 20110215
  Receipt Date: 20110215
  Transmission Date: 20110831
  Serious: Yes (Death, Life-Threatening, Hospitalization)
  Sender: FDA-Public Use
  Company Number: None

PATIENT
  Age: 74 Year
  Sex: Male
  Weight: 95.2 kg

DRUGS (2)
  1. DILTIAZEM [Suspect]
     Indication: ATRIAL FIBRILLATION
     Dosage: 240 MG EVERY DAY PO
     Route: 048
     Dates: start: 20100503, end: 20101121
  2. SIMVASTATIN [Suspect]
     Indication: HYPERLIPIDAEMIA
     Dosage: 40 MG AT BEDTIME PO
     Route: 048
     Dates: start: 20100922, end: 20101103

REACTIONS (5)
  - RENAL TUBULAR NECROSIS [None]
  - HYPOVOLAEMIA [None]
  - ACUTE PRERENAL FAILURE [None]
  - RHABDOMYOLYSIS [None]
  - HYPOPHAGIA [None]
